FAERS Safety Report 15535726 (Version 1)
Quarter: 2018Q4

REPORT INFORMATION
  Report Type: Spontaneous
  Country: GB (occurrence: US)
  Receive Date: 20181018
  Receipt Date: 20181018
  Transmission Date: 20190205
  Serious: Yes (Life-Threatening, Other)
  Sender: FDA-Public Use
  Company Number: None

PATIENT

DRUGS (1)
  1. MIRACLE MINERAL SOLUTION [Suspect]
     Active Substance: SODIUM CHLORITE
     Indication: AUTISM SPECTRUM DISORDER
     Dosage: ?          OTHER ROUTE:CD PROTOCOL?

REACTIONS (10)
  - Physical abuse [None]
  - Abdominal pain upper [None]
  - Rash [None]
  - Aggression [None]
  - Pain [None]
  - Product use in unapproved indication [None]
  - Genital pain [None]
  - Screaming [None]
  - Proctalgia [None]
  - Gastrointestinal mucosal exfoliation [None]
